FAERS Safety Report 4897594-9 (Version None)
Quarter: 2006Q1

REPORT INFORMATION
  Report Type: 
  Country: None (occurrence: None)
  Receive Date: 20060130
  Receipt Date: 20060130
  Transmission Date: 20060701
  Serious: Yes (Other)
  Sender: FDA-Public Use
  Company Number: None

PATIENT
  Age: 70 Year
  Sex: Female
  Weight: 72.5755 kg

DRUGS (2)
  1. LOVASTATIN [Suspect]
     Indication: BLOOD CHOLESTEROL INCREASED
     Dosage: 40MG DAILY
     Dates: start: 20040104, end: 20060128
  2. ZETIA [Suspect]
     Dosage: 10MG DAILY
     Dates: start: 20040610, end: 20060128

REACTIONS (2)
  - AMNESIA [None]
  - BLOOD CHOLESTEROL INCREASED [None]
